FAERS Safety Report 7769573-5 (Version None)
Quarter: 2011Q3

REPORT INFORMATION
  Report Type: 
  Country: None (occurrence: None)
  Receive Date: 20110922
  Receipt Date: 20110301
  Transmission Date: 20111222
  Serious: No
  Sender: FDA-Public Use
  Company Number: US-ASTRAZENECA-2011SE11160

PATIENT

DRUGS (4)
  1. RISPERDAL [Concomitant]
  2. AMBIEN [Concomitant]
  3. WELLBUTRIN SR [Concomitant]
  4. SEROQUEL [Suspect]
     Route: 048
     Dates: start: 20030715

REACTIONS (4)
  - DEPRESSION [None]
  - TYPE 2 DIABETES MELLITUS [None]
  - HYPERTENSION [None]
  - OBESITY [None]
